FAERS Safety Report 4395370-7 (Version None)
Quarter: 2004Q3

REPORT INFORMATION
  Report Type: 
  Country: None (occurrence: None)
  Receive Date: 20040712
  Receipt Date: 20040712
  Transmission Date: 20050211
  Serious: No
  Sender: FDA-Public Use
  Company Number: None

PATIENT
  Age: 50 Year
  Sex: Female
  Weight: 68.0396 kg

DRUGS (2)
  1. CLONAZEPAM [Suspect]
     Indication: INSOMNIA
     Dosage: 1-2 AT BEDTIME ORAL
     Route: 048
     Dates: start: 20040708, end: 20040708
  2. LORAZEPAM [Suspect]
     Dosage: 1-2 AT BEDTIME ORAL
     Route: 048
     Dates: start: 20040708, end: 20040708

REACTIONS (1)
  - MEDICATION ERROR [None]
